FAERS Safety Report 17471706 (Version 1)
Quarter: 2020Q1

REPORT INFORMATION
  Report Type: Spontaneous
  Country: GB (occurrence: GB)
  Receive Date: 20200228
  Receipt Date: 20200228
  Transmission Date: 20200409
  Serious: Yes (Disabling, Other)
  Sender: FDA-Public Use
  Company Number: GB-TEVA-2020-GB-1192185

PATIENT
  Age: 55 Year
  Sex: Female
  Weight: 85.72 kg

DRUGS (1)
  1. PROPRANOLOL [Suspect]
     Active Substance: PROPRANOLOL HYDROCHLORIDE
     Indication: PALPITATIONS
     Dosage: 10 MILLIGRAM DAILY; STILL TAKING 10ML PER DAY FOR PALPITATIONS?AND PULSATIONS
     Route: 048
     Dates: start: 20110102

REACTIONS (1)
  - Hallucination, visual [Recovered/Resolved with Sequelae]

NARRATIVE: CASE EVENT DATE: 20120101
